FAERS Safety Report 9653264 (Version 1)
Quarter: 2013Q4

REPORT INFORMATION
  Report Type: Spontaneous
  Country: None (occurrence: None)
  Receive Date: 20131028
  Receipt Date: 20131028
  Transmission Date: 20140711
  Serious: Yes (Disabling)
  Sender: FDA-Public Use
  Company Number: None

PATIENT
  Age: 36 Year
  Sex: Male
  Weight: 88.45 kg

DRUGS (2)
  1. PROPECIA [Suspect]
     Indication: ALOPECIA
     Dosage: 1MG1ST6MO,1/2MG, TAPEREDLAST3WK  ONCE DAILY
     Route: 048
     Dates: start: 20090815, end: 20120430
  2. PROPECIA [Suspect]
     Indication: PROPHYLAXIS
     Dosage: 1MG1ST6MO,1/2MG, TAPEREDLAST3WK  ONCE DAILY
     Route: 048
     Dates: start: 20090815, end: 20120430

REACTIONS (23)
  - Erectile dysfunction [None]
  - Organic erectile dysfunction [None]
  - Penile size reduced [None]
  - Skin wrinkling [None]
  - Hypoaesthesia [None]
  - Feeling cold [None]
  - Penis disorder [None]
  - Scrotal disorder [None]
  - Depression [None]
  - Cognitive disorder [None]
  - Thinking abnormal [None]
  - Ejaculation failure [None]
  - Loss of libido [None]
  - Anorgasmia [None]
  - Premature ejaculation [None]
  - Fatigue [None]
  - Muscle disorder [None]
  - Body temperature decreased [None]
  - Speech disorder [None]
  - Visual acuity reduced [None]
  - Dark circles under eyes [None]
  - Genital disorder male [None]
  - Emotional disorder [None]
